FAERS Safety Report 16903592 (Version 3)
Quarter: 2020Q4

REPORT INFORMATION
  Report Type: Spontaneous
  Country: US (occurrence: US)
  Receive Date: 20191010
  Receipt Date: 20201217
  Transmission Date: 20210113
  Serious: No
  Sender: FDA-Public Use
  Company Number: US-PFIZER INC-2019435018

PATIENT
  Age: 48 Year
  Sex: Female
  Weight: 99.79 kg

DRUGS (1)
  1. LYRICA [Suspect]
     Active Substance: PREGABALIN
     Indication: NEUROPATHY PERIPHERAL
     Dosage: 50 MG, TWICE DAILY
     Route: 048

REACTIONS (3)
  - Hypersensitivity [Unknown]
  - Memory impairment [Unknown]
  - Sneezing [Unknown]
